FAERS Safety Report 7994138-X (Version None)
Quarter: 2011Q4

REPORT INFORMATION
  Report Type: 
  Country: None (occurrence: None)
  Receive Date: 20111220
  Receipt Date: 20111207
  Transmission Date: 20120403
  Serious: Yes (Hospitalization, Other)
  Sender: FDA-Public Use
  Company Number: US-ELI_LILLY_AND_COMPANY-USA050394470

PATIENT
  Sex: Female
  Weight: 104 kg

DRUGS (9)
  1. HUMULIN R [Suspect]
     Indication: DIABETES MELLITUS
     Dosage: 35 U, EACH EVENING
  2. HUMULIN R [Suspect]
     Dosage: UNK, UNKNOWN
  3. HUMALOG [Suspect]
     Dosage: UNK, BID
  4. CELEBREX [Concomitant]
     Indication: ARTHRALGIA
     Dosage: UNK, UNKNOWN
  5. NAPROSYN [Concomitant]
     Indication: ARTHRALGIA
     Dosage: UNK, UNKNOWN
  6. IBUPROFEN [Concomitant]
     Indication: ARTHRALGIA
     Dosage: 800 MG, 2/D
     Dates: start: 19950101
  7. HUMALOG [Suspect]
     Indication: DIABETES MELLITUS
     Dosage: 42 U, DAILY (1/D)
  8. BEXTRA [Concomitant]
     Indication: ARTHRALGIA
     Dosage: UNK, UNKNOWN
  9. WELCHOL [Concomitant]
     Indication: BLOOD CHOLESTEROL INCREASED
     Dosage: UNK, UNKNOWN
     Dates: start: 20050226, end: 20050324

REACTIONS (11)
  - CATARACT [None]
  - NON-HODGKIN'S LYMPHOMA [None]
  - MEMORY IMPAIRMENT [None]
  - BODY HEIGHT DECREASED [None]
  - BLOOD CHOLESTEROL INCREASED [None]
  - ASTHENIA [None]
  - VISUAL ACUITY REDUCED [None]
  - NON-HODGKIN'S LYMPHOMA RECURRENT [None]
  - CHOKING [None]
  - OSTEOARTHRITIS [None]
  - GLAUCOMA [None]
